FAERS Safety Report 8152381-3 (Version None)
Quarter: 2012Q1

REPORT INFORMATION
  Report Type: 
  Country: None (occurrence: None)
  Receive Date: 20120221
  Receipt Date: 20120216
  Transmission Date: 20120608
  Serious: Yes (Hospitalization)
  Sender: FDA-Public Use
  Company Number: EG-SANOFI-AVENTIS-2012SA010297

PATIENT
  Age: 10 Year
  Sex: Male

DRUGS (3)
  1. LANTUS [Suspect]
     Indication: TYPE 1 DIABETES MELLITUS
     Dosage: DOSE:20 UNIT(S)
     Route: 058
     Dates: start: 20111205
  2. LANTUS [Suspect]
     Dosage: DOSE:18 UNIT(S)
     Route: 058
  3. LANTUS [Suspect]
     Dosage: DOSE:25 UNIT(S)
     Route: 058

REACTIONS (4)
  - KETOACIDOSIS [None]
  - HEPATITIS A [None]
  - HYPERGLYCAEMIA [None]
  - DRUG INEFFECTIVE [None]
